FAERS Safety Report 9835218 (Version 2)
Quarter: 2014Q2

REPORT INFORMATION
  Report Type: Spontaneous
  Country: US (occurrence: US)
  Receive Date: 20140122
  Receipt Date: 20140424
  Transmission Date: 20141212
  Serious: No
  Sender: FDA-Public Use
  Company Number: US-BRISTOL-MYERS SQUIBB COMPANY-19866458

PATIENT
  Age: 88 Year
  Sex: Male
  Weight: 78.91 kg

DRUGS (4)
  1. ELIQUIS [Suspect]
     Indication: STENT PLACEMENT
     Route: 048
     Dates: start: 20130702
  2. PLAVIX [Suspect]
     Route: 048
     Dates: start: 20130202
  3. ATENOLOL [Concomitant]
  4. ASPIRIN [Concomitant]

REACTIONS (1)
  - Hypoaesthesia [Not Recovered/Not Resolved]
